FAERS Safety Report 6269288-9 (Version None)
Quarter: 2009Q3

REPORT INFORMATION
  Report Type: 
  Country: None (occurrence: None)
  Receive Date: 20090715
  Receipt Date: 20090710
  Transmission Date: 20100115
  Serious: Yes (Life-Threatening, Hospitalization)
  Sender: FDA-Public Use
  Company Number: CA-CELGENEUS-028-C5013-09051061

PATIENT
  Sex: Male
  Weight: 92 kg

DRUGS (30)
  1. CC-5013 [Suspect]
     Indication: MULTIPLE MYELOMA
     Route: 048
     Dates: start: 20090509
  2. CC-5013 [Suspect]
     Route: 048
     Dates: start: 20090409
  3. DEXAMETHASONE [Suspect]
     Indication: MULTIPLE MYELOMA
     Route: 048
     Dates: start: 20090509
  4. DEXAMETHASONE [Suspect]
     Route: 048
     Dates: start: 20090409
  5. AMOXICILLIN [Suspect]
     Indication: INFECTION PROPHYLAXIS
     Route: 048
     Dates: start: 20090509, end: 20090511
  6. RAMIPRIL [Concomitant]
     Indication: HYPERTENSION
     Route: 048
     Dates: start: 19990101
  7. LASIX [Concomitant]
     Indication: HYPERTENSION
     Route: 048
     Dates: start: 20030101
  8. LASIX [Concomitant]
     Route: 051
     Dates: start: 20090512
  9. CARVEDILOL [Concomitant]
     Indication: HYPERTENSION
     Route: 048
     Dates: start: 20050101
  10. CARVEDILOL [Concomitant]
     Route: 048
     Dates: start: 20090511
  11. ALLOPURINOL [Concomitant]
     Indication: GOUT
     Route: 048
     Dates: start: 19990101
  12. DIGOXIN [Concomitant]
     Indication: ATRIAL FIBRILLATION
     Route: 048
     Dates: end: 20080901
  13. DIGOXIN [Concomitant]
     Route: 048
     Dates: start: 20090512
  14. DIGOXIN [Concomitant]
     Route: 051
     Dates: start: 20090511
  15. RABEPRAZOLE SODIUM [Concomitant]
     Indication: PROPHYLAXIS
     Route: 048
     Dates: start: 20081001
  16. ATIVAN [Concomitant]
     Dates: start: 20090409
  17. TYLENOL W/ CODEINE NO. 3 [Concomitant]
     Indication: TOOTH EXTRACTION
     Route: 048
     Dates: start: 20090601, end: 20090612
  18. CEFEPIME [Concomitant]
     Indication: INFECTION PROPHYLAXIS
     Route: 048
     Dates: start: 20090512, end: 20090516
  19. FLAGYL [Concomitant]
     Indication: INFECTION PROPHYLAXIS
     Dates: start: 20090512, end: 20090516
  20. FLAGYL [Concomitant]
     Route: 051
     Dates: start: 20090511, end: 20090512
  21. SOLU-CORTEF [Concomitant]
     Route: 051
     Dates: start: 20090511
  22. CEFTRIAXONE [Concomitant]
     Indication: INFECTION PROPHYLAXIS
     Route: 051
     Dates: start: 20090511, end: 20090512
  23. HEPARIN [Concomitant]
     Indication: ATRIAL FIBRILLATION
     Dosage: 5000 UNITS
     Route: 058
     Dates: start: 20090511, end: 20090512
  24. HEPARIN [Concomitant]
  25. METOPROLOL TARTRATE [Concomitant]
     Indication: ATRIAL FIBRILLATION
     Route: 048
     Dates: start: 20090511, end: 20090512
  26. METOPROLOL TARTRATE [Concomitant]
  27. PAMIDRONATE DISODIUM [Concomitant]
     Indication: DRUG USE FOR UNKNOWN INDICATION
     Route: 051
     Dates: start: 20090213
  28. WARFARIN SODIUM [Concomitant]
     Indication: PROPHYLAXIS
     Route: 048
     Dates: start: 20090515
  29. ASPIRIN [Concomitant]
     Indication: DRUG USE FOR UNKNOWN INDICATION
  30. METOLAZONE [Concomitant]
     Indication: DRUG USE FOR UNKNOWN INDICATION
     Route: 065

REACTIONS (1)
  - CARDIAC FAILURE CONGESTIVE [None]
